FAERS Safety Report 6826171-5 (Version None)
Quarter: 2010Q3

REPORT INFORMATION
  Report Type: 
  Country: None (occurrence: None)
  Receive Date: 20100709
  Receipt Date: 20100630
  Transmission Date: 20110219
  Serious: Yes (Other)
  Sender: FDA-Public Use
  Company Number: HQWYE001017JUL06

PATIENT
  Sex: Female

DRUGS (2)
  1. PREMARIN [Suspect]
     Indication: OESTROGEN REPLACEMENT THERAPY
  2. PROVERA [Suspect]

REACTIONS (4)
  - BREAST CANCER METASTATIC [None]
  - LUNG NEOPLASM [None]
  - METASTASES TO BONE [None]
  - METASTASES TO LIVER [None]
